FAERS Safety Report 7631418-1 (Version None)
Quarter: 2011Q3

REPORT INFORMATION
  Report Type: 
  Country: None (occurrence: None)
  Receive Date: 20110725
  Receipt Date: 20110718
  Transmission Date: 20111222
  Serious: Yes (Hospitalization)
  Sender: FDA-Public Use
  Company Number: US-JNJFOC-20110704010

PATIENT
  Sex: Male

DRUGS (8)
  1. ZOLPIDEM TARTRATE [Concomitant]
     Indication: PRODUCT USED FOR UNKNOWN INDICATION
     Route: 048
  2. MIRALAX [Concomitant]
     Indication: CONSTIPATION
     Route: 048
  3. OXYCODON [Concomitant]
     Indication: PAIN
     Route: 048
  4. CETIRIZINE HCL [Concomitant]
     Indication: MULTIPLE ALLERGIES
     Route: 048
  5. ZYTIGA [Suspect]
     Indication: PROSTATE CANCER
     Route: 048
     Dates: start: 20110628
  6. MORPHINE [Suspect]
     Indication: PAIN
     Route: 048
  7. SPIRONOLACTONE [Suspect]
     Indication: PRODUCT USED FOR UNKNOWN INDICATION
     Route: 048
  8. TORSEMIDE [Concomitant]
     Indication: PRODUCT USED FOR UNKNOWN INDICATION
     Route: 048

REACTIONS (4)
  - BLOOD PRESSURE DECREASED [None]
  - ANXIETY [None]
  - OEDEMA PERIPHERAL [None]
  - HEART RATE INCREASED [None]
